FAERS Safety Report 7082499-8 (Version None)
Quarter: 2010Q4

REPORT INFORMATION
  Report Type: 
  Country: None (occurrence: None)
  Receive Date: 20101104
  Receipt Date: 20101021
  Transmission Date: 20110411
  Serious: Yes (Life-Threatening, Hospitalization, Other)
  Sender: FDA-Public Use
  Company Number: GB-RANBAXY-2009RR-29313

PATIENT
  Age: 59 Year
  Sex: Female
  Weight: 80 kg

DRUGS (7)
  1. METFORMIN [Suspect]
     Indication: TYPE 2 DIABETES MELLITUS
     Dosage: 500 MG, TID
     Route: 048
     Dates: start: 19940101
  2. XENICAL [Suspect]
     Indication: OBESITY
     Dosage: 120 MG, TID
     Route: 065
     Dates: start: 19990622, end: 19990914
  3. TAGAMET [Suspect]
     Indication: ABDOMINAL PAIN UPPER
     Dosage: 400 MG, BID
     Route: 048
     Dates: start: 19990814
  4. ASPIRIN [Concomitant]
     Dosage: UNK
     Route: 048
     Dates: start: 19940101
  5. CO-AMILOFRUSE [Concomitant]
     Dosage: UNK
     Route: 048
     Dates: start: 19940101
  6. SODIUM BICARBONATE [Concomitant]
     Route: 065
  7. METFORMIN [Concomitant]

REACTIONS (16)
  - ABDOMINAL PAIN [None]
  - ACUTE PRERENAL FAILURE [None]
  - AGITATION [None]
  - ASTHENIA [None]
  - CIRCULATORY COLLAPSE [None]
  - COMA SCALE ABNORMAL [None]
  - CONFUSIONAL STATE [None]
  - DEPRESSED LEVEL OF CONSCIOUSNESS [None]
  - DIARRHOEA [None]
  - DIZZINESS [None]
  - DRUG INTERACTION [None]
  - DYSARTHRIA [None]
  - LACTIC ACIDOSIS [None]
  - RENAL FAILURE ACUTE [None]
  - VISION BLURRED [None]
  - VOMITING [None]
